FAERS Safety Report 8628783 (Version 3)
Quarter: 2012Q4

REPORT INFORMATION
  Report Type: 
  Country: IT (occurrence: IT)
  Receive Date: 20120621
  Receipt Date: 20121004
  Transmission Date: 20130627
  Serious: Yes (Hospitalization)
  Sender: FDA-Public Use
  Company Number: IT-NAPPMUNDI-GBR-2012-0010787

PATIENT
  Age: 61 Year
  Sex: Male

DRUGS (7)
  1. HYDROMORPHONE HCL [Suspect]
     Indication: PAIN MANAGEMENT
     Dosage: 16 mg, daily
     Route: 048
     Dates: start: 20091129
  2. LEVOFLOXACIN [Interacting]
     Indication: PYREXIA
     Dosage: 500 mg, daily
     Route: 048
     Dates: start: 20091129
  3. NADROPARIN [Interacting]
     Indication: DEEP VEIN THROMBOSIS
     Dosage: 5700 UI, daily
     Route: 058
  4. GLIBENCLAMIDE [Interacting]
     Indication: TYPE 2 DIABETES MELLITUS
     Dosage: 400mg /2.5mg, bid
     Route: 048
  5. LIPIDS NOS [Concomitant]
     Indication: DYSPHAGIA
  6. GLUCOSE [Concomitant]
     Indication: DYSPHAGIA
  7. AMINO ACIDS [Concomitant]
     Indication: DYSPHAGIA

REACTIONS (2)
  - Drug interaction [Recovered/Resolved]
  - Hypoglycaemic coma [Recovered/Resolved]
